FAERS Safety Report 18546341 (Version 1)
Quarter: 2020Q4

REPORT INFORMATION
  Report Type: Spontaneous
  Country: GB (occurrence: GB)
  Receive Date: 20201125
  Receipt Date: 20201125
  Transmission Date: 20210114
  Serious: Yes (Other)
  Sender: FDA-Public Use
  Company Number: GB-BAYER-2020-249376

PATIENT
  Age: 29 Year
  Sex: Female
  Weight: 57.15 kg

DRUGS (1)
  1. MIRENA [Suspect]
     Active Substance: LEVONORGESTREL
     Indication: CONTRACEPTION
     Dosage: 20 ?G PER DAY CONTINOUSLY
     Route: 015
     Dates: start: 20160128, end: 20201020

REACTIONS (4)
  - Mood swings [Unknown]
  - Breast tenderness [Recovered/Resolved]
  - Emotional distress [Unknown]
  - Affect lability [Unknown]

NARRATIVE: CASE EVENT DATE: 20200208
